FAERS Safety Report 12349313 (Version 1)
Quarter: 2016Q2

REPORT INFORMATION
  Report Type: Spontaneous
  Country: US (occurrence: US)
  Receive Date: 20160509
  Receipt Date: 20160509
  Transmission Date: 20160815
  Serious: No
  Sender: FDA-Public Use
  Company Number: US-BIOMARINAP-US-2016-109655

PATIENT
  Sex: Female

DRUGS (2)
  1. NUTRIENTS WITHOUT PHENYLALANINE [Suspect]
     Active Substance: UNSPECIFIED INGREDIENT
     Indication: PHENYLKETONURIA
     Route: 065
  2. KUVAN [Suspect]
     Active Substance: SAPROPTERIN DIHYDROCHLORIDE
     Indication: PHENYLKETONURIA
     Dosage: 20 MG/KG, UNK
     Route: 065

REACTIONS (1)
  - Maternal exposure during pregnancy [Recovered/Resolved]
